FAERS Safety Report 8247273-5 (Version None)
Quarter: 2012Q1

REPORT INFORMATION
  Report Type: 
  Country: None (occurrence: None)
  Receive Date: 20120330
  Receipt Date: 20120322
  Transmission Date: 20120608
  Serious: Yes (Other)
  Sender: FDA-Public Use
  Company Number: US-BAYER-2012-028094

PATIENT
  Age: 20 Year
  Sex: Female

DRUGS (1)
  1. SAFYRAL [Suspect]

REACTIONS (1)
  - CEREBROVASCULAR ACCIDENT [None]
